FAERS Safety Report 21456984 (Version 1)
Quarter: 2022Q4

REPORT INFORMATION
  Report Type: Other
  Country: CN (occurrence: None)
  Receive Date: 20221014
  Receipt Date: 20221014
  Transmission Date: 20230113
  Serious: Yes (Other)
  Sender: FDA-Public Use
  Company Number: CN-ROCHE-3199310

PATIENT
  Sex: Female

DRUGS (6)
  1. TRASTUZUMAB [Suspect]
     Active Substance: TRASTUZUMAB
     Indication: Invasive breast carcinoma
     Dosage: THE INFUSION WAS COMPLETED WITHIN 1.5 HOURS AND ADMINISTERED ONCE AT AN INTERVAL OF 21 DAYS (I.E., 2
     Route: 041
  2. TRASTUZUMAB [Suspect]
     Active Substance: TRASTUZUMAB
     Dosage: THE DOSAGE OF TRASTUZUMAB WAS REDUCED TO 6 MG/KG FROM THE THIRD CYCLE.4 CYCLES OF CONTINUOUS TREATME
     Route: 041
  3. PERTUZUMAB [Suspect]
     Active Substance: PERTUZUMAB
     Indication: Invasive breast carcinoma
     Dosage: EVERY 21 DAYS WAS A CYCLE OF CHEMOTHERAPY, 4 CYCLES OF CONTINUOUS TREATMENT, THE FIRST DOSE WAS 840
     Route: 041
  4. PERTUZUMAB [Suspect]
     Active Substance: PERTUZUMAB
     Dosage: THE DOSE WAS REDUCED TO 420 MG FROM THE SECOND COURSE.
     Route: 041
  5. PACLITAXEL [Suspect]
     Active Substance: PACLITAXEL
     Indication: Invasive breast carcinoma
     Dosage: EVERY 21 DAYS AS A CHEMOTHERAPY CYCLE, 4 CYCLES OF CONTINUOUS TREATMENT, ON THE FIRST DAY OF THE CHE
     Route: 041
  6. CARBOPLATIN [Suspect]
     Active Substance: CARBOPLATIN
     Indication: Breast cancer
     Dosage: 0.3 G/M2. EVERY 21 DAYS IS A CHEMOTHERAPY CYCLE, 4 CYCLES OF CONTINUOUS TREATMENT, ON THE FIRST DAY
     Route: 041

REACTIONS (1)
  - Myelosuppression [Unknown]
